FAERS Safety Report 21804893 (Version 3)
Quarter: 2023Q1

REPORT INFORMATION
  Report Type: Spontaneous
  Country: US (occurrence: US)
  Receive Date: 20230102
  Receipt Date: 20230104
  Transmission Date: 20230418
  Serious: No
  Sender: FDA-Public Use
  Company Number: US-002147023-NVSC2022US301552

PATIENT
  Sex: Female

DRUGS (1)
  1. LATANOPROST [Suspect]
     Active Substance: LATANOPROST
     Indication: Product used for unknown indication
     Dosage: UNK UNK, QD (EVERY NIGHT) (2.5 ML)
     Route: 065
     Dates: start: 20221222, end: 20221225

REACTIONS (2)
  - Eye irritation [Unknown]
  - Product container issue [Unknown]
